FAERS Safety Report 16280434 (Version 1)
Quarter: 2019Q2

REPORT INFORMATION
  Report Type: Spontaneous
  Country: US (occurrence: US)
  Receive Date: 20190507
  Receipt Date: 20190507
  Transmission Date: 20190711
  Serious: No
  Sender: FDA-Public Use
  Company Number: US-APOTEX-2018AP019644

PATIENT
  Age: 65 Year
  Sex: Female
  Weight: 68 kg

DRUGS (2)
  1. NOCTIVA [Suspect]
     Active Substance: DESMOPRESSIN ACETATE
     Indication: NOCTURIA
     Dosage: 1 DF, QD, BEFORE BED, 0.83 MICROGRAM IN THE RIGHT NOSTRIL
     Route: 045
     Dates: start: 20180731
  2. TRAZODONE [Suspect]
     Active Substance: TRAZODONE HYDROCHLORIDE
     Indication: PRODUCT USED FOR UNKNOWN INDICATION
     Dosage: 1 DF, Q.H.S.
     Route: 065

REACTIONS (2)
  - Drug interaction [Unknown]
  - Insomnia [Unknown]

NARRATIVE: CASE EVENT DATE: 20180731
